FAERS Safety Report 10217575 (Version 2)
Quarter: 2014Q3

REPORT INFORMATION
  Report Type: Spontaneous
  Country: CR (occurrence: CR)
  Receive Date: 20140604
  Receipt Date: 20140708
  Transmission Date: 20150326
  Serious: Yes (Hospitalization, Other)
  Sender: FDA-Public Use
  Company Number: CR-ABBVIE-14P-039-1241870-00

PATIENT
  Age: 33 Year
  Sex: Male

DRUGS (1)
  1. HUMIRA [Suspect]
     Active Substance: ADALIMUMAB
     Indication: PSORIATIC ARTHROPATHY
     Route: 058
     Dates: start: 20080403

REACTIONS (12)
  - Diplopia [Unknown]
  - Hemiparesis [Unknown]
  - Dysaesthesia [Unknown]
  - Ageusia [Unknown]
  - Cerebrovascular accident [Unknown]
  - Paraesthesia [Unknown]
  - Central nervous system lesion [Unknown]
  - Hypoaesthesia oral [Unknown]
  - Strabismus [Unknown]
  - Motor dysfunction [Unknown]
  - Nuclear magnetic resonance imaging abnormal [Unknown]
  - Leukoencephalopathy [Recovering/Resolving]
